FAERS Safety Report 9373247 (Version 2)
Quarter: 2013Q3

REPORT INFORMATION
  Report Type: Spontaneous
  Country: BG (occurrence: BG)
  Receive Date: 20130627
  Receipt Date: 20130705
  Transmission Date: 20140515
  Serious: Yes (Death)
  Sender: FDA-Public Use
  Company Number: BG-ASTRAZENECA-2013SE48587

PATIENT
  Age: 57 Year
  Sex: Male

DRUGS (5)
  1. BRILIQUE [Suspect]
     Indication: ANGINA UNSTABLE
     Dosage: 180 MG LOADING DOSE
     Route: 048
  2. ARIXTRA [Concomitant]
  3. ASPIRIN [Concomitant]
     Route: 048
  4. EMAP [Concomitant]
  5. ATORIS [Concomitant]
     Route: 048

REACTIONS (2)
  - Haemorrhagic stroke [Fatal]
  - Coma [Fatal]
